FAERS Safety Report 8279448-3 (Version None)
Quarter: 2012Q2

REPORT INFORMATION
  Report Type: 
  Country: None (occurrence: None)
  Receive Date: 20120412
  Receipt Date: 20111109
  Transmission Date: 20120825
  Serious: No
  Sender: FDA-Public Use
  Company Number: US-ASTRAZENECA-2011SE03681

PATIENT
  Age: 62 Year
  Sex: Female
  Weight: 68 kg

DRUGS (5)
  1. GLUCONTROL [Concomitant]
  2. INDURAL [Concomitant]
  3. XANAX [Concomitant]
  4. NEXIUM [Suspect]
     Indication: GASTROOESOPHAGEAL REFLUX DISEASE
     Route: 048
  5. PAIN MEDICATIONS [Concomitant]

REACTIONS (3)
  - INFLUENZA [None]
  - DIABETES MELLITUS [None]
  - OROPHARYNGEAL PAIN [None]
